FAERS Safety Report 9241710 (Version 1)
Quarter: 2013Q2

REPORT INFORMATION
  Report Type: Spontaneous
  Country: US (occurrence: US)
  Receive Date: 20130419
  Receipt Date: 20130419
  Transmission Date: 20140414
  Serious: Yes (Other)
  Sender: FDA-Public Use
  Company Number: PHEH2013US008535

PATIENT
  Age: 90 Year
  Sex: Female

DRUGS (8)
  1. DIOVAN [Suspect]
     Dosage: 80 MG, QD
  2. AMLODIPINE [Concomitant]
  3. LASIX [Concomitant]
  4. XALATAN [Concomitant]
  5. L-THYROXINE [Concomitant]
  6. POTASSIUM CHLORIDE [Concomitant]
  7. ZOLOFT [Concomitant]
  8. DUONEB [Concomitant]
     Indication: BRONCHOSPASM

REACTIONS (1)
  - Fall [Unknown]
